FAERS Safety Report 4785109-5 (Version None)
Quarter: 2005Q3

REPORT INFORMATION
  Report Type: 
  Country: None (occurrence: None)
  Receive Date: 20050928
  Receipt Date: 20050914
  Transmission Date: 20060218
  Serious: Yes (Life-Threatening)
  Sender: FDA-Public Use
  Company Number: EWC041040897

PATIENT
  Age: 45 Year
  Sex: Male

DRUGS (1)
  1. XIGRIS [Suspect]
     Indication: SEPSIS
     Dosage: 24 UG;KG/HR
     Dates: start: 20040924, end: 20041002

REACTIONS (2)
  - BLOOD FIBRINOGEN INCREASED [None]
  - THROMBOCYTOPENIA [None]
